FAERS Safety Report 13187628 (Version 3)
Quarter: 2017Q1

REPORT INFORMATION
  Report Type: Report from Study
  Country: JP (occurrence: JP)
  Receive Date: 20170206
  Receipt Date: 20170328
  Transmission Date: 20170428
  Serious: Yes (Other)
  Sender: FDA-Public Use
  Company Number: JP-UCBSA-2017003727

PATIENT
  Sex: Male
  Weight: 64 kg

DRUGS (6)
  1. LEVETIRACETAM. [Suspect]
     Active Substance: LEVETIRACETAM
     Indication: PARTIAL SEIZURES WITH SECONDARY GENERALISATION
     Dosage: 250 MG, 2X/DAY (BID)
     Route: 048
     Dates: start: 20160915, end: 20161025
  2. CERCINE [Concomitant]
     Active Substance: DIAZEPAM
     Indication: PARTIAL SEIZURES WITH SECONDARY GENERALISATION
     Route: 042
     Dates: start: 20161026, end: 20161026
  3. ALEVIATIN [Concomitant]
     Active Substance: PHENYTOIN SODIUM
     Indication: PARTIAL SEIZURES WITH SECONDARY GENERALISATION
     Route: 042
     Dates: start: 20161026, end: 20161026
  4. ISOZOL [Concomitant]
     Active Substance: THIAMYLAL SODIUM
     Indication: PARTIAL SEIZURES WITH SECONDARY GENERALISATION
     Route: 042
     Dates: start: 20161026, end: 20161027
  5. LEVETIRACETAM. [Suspect]
     Active Substance: LEVETIRACETAM
     Dosage: 500 MG, 2X/DAY (BID)
     Route: 048
     Dates: start: 20161027
  6. PHENOBAL [Concomitant]
     Active Substance: PHENOBARBITAL
     Indication: PARTIAL SEIZURES WITH SECONDARY GENERALISATION
     Route: 042
     Dates: start: 20161026, end: 20161026

REACTIONS (1)
  - Status epilepticus [Unknown]
